FAERS Safety Report 8089115 (Version 3)
Quarter: 2012Q4

REPORT INFORMATION
  Report Type: 
  Country: IN (occurrence: IN)
  Receive Date: 20110812
  Receipt Date: 20120911
  Transmission Date: 20130627
  Serious: Yes (Death)
  Sender: FDA-Public Use
  Company Number: IN-GENZYME-POMP-1001702

PATIENT
  Age: 1 Year
  Sex: Male

DRUGS (1)
  1. MYOZYME [Suspect]
     Indication: GLYCOGEN STORAGE DISEASE TYPE II
     Dosage: UNK
     Route: 042
     Dates: start: 20091210, end: 20110723

REACTIONS (1)
  - Pneumonia [Fatal]
